FAERS Safety Report 13844458 (Version 4)
Quarter: 2017Q4

REPORT INFORMATION
  Report Type: Report from Study
  Country: PL (occurrence: PL)
  Receive Date: 20170808
  Receipt Date: 20171018
  Transmission Date: 20180320
  Serious: Yes (Death, Hospitalization)
  Sender: FDA-Public Use
  Company Number: PL-BIOGEN-2017BI00442606

PATIENT
  Age: 9 Month
  Sex: Male
  Weight: 7.27 kg

DRUGS (1)
  1. SPINRAZA [Suspect]
     Active Substance: NUSINERSEN
     Indication: SPINAL MUSCULAR ATROPHY
     Dosage: 4.5 ML ADMINISTERED
     Route: 037
     Dates: start: 20170725, end: 20170725

REACTIONS (4)
  - Loss of consciousness [Unknown]
  - Pulse abnormal [Unknown]
  - Pneumonia [Fatal]
  - Prescribed underdose [Recovered/Resolved]

NARRATIVE: CASE EVENT DATE: 20170725
